FAERS Safety Report 17611964 (Version 4)
Quarter: 2020Q3

REPORT INFORMATION
  Report Type: Spontaneous
  Country: US (occurrence: US)
  Receive Date: 20200401
  Receipt Date: 20200909
  Transmission Date: 20201102
  Serious: Yes (Hospitalization, Other)
  Sender: FDA-Public Use
  Company Number: US-BAYER-2020-052894

PATIENT
  Age: 64 Year
  Sex: Male

DRUGS (1)
  1. KOGENATE FS [Suspect]
     Active Substance: ANTIHEMOPHILIC FACTOR, HUMAN RECOMBINANT
     Dosage: 1600 U
     Route: 042

REACTIONS (2)
  - Haemarthrosis [Recovered/Resolved]
  - Hernia repair [None]

NARRATIVE: CASE EVENT DATE: 20200220
